FAERS Safety Report 7802163-4 (Version None)
Quarter: 2011Q4

REPORT INFORMATION
  Report Type: 
  Country: None (occurrence: None)
  Receive Date: 20111007
  Receipt Date: 20110928
  Transmission Date: 20120403
  Serious: Yes (Other)
  Sender: FDA-Public Use
  Company Number: JP-JNJFOC-20111000544

PATIENT
  Sex: Male
  Weight: 71 kg

DRUGS (16)
  1. REMICADE [Suspect]
     Indication: BEHCET'S SYNDROME
     Route: 042
     Dates: start: 20100212
  2. REMICADE [Suspect]
     Route: 042
     Dates: start: 20100114
  3. HALCION [Concomitant]
     Indication: INSOMNIA
     Route: 048
  4. PURSENNID [Concomitant]
     Indication: CONSTIPATION
     Route: 048
  5. STEROIDS NOS [Concomitant]
     Route: 050
  6. ANTIHISTAMINES [Concomitant]
     Indication: PROPHYLAXIS
     Dates: start: 20100212
  7. OMEPRAZOLE [Concomitant]
     Indication: GASTROOESOPHAGEAL REFLUX DISEASE
     Route: 048
  8. ACETAMINOPHEN [Concomitant]
     Indication: PROPHYLAXIS
     Dates: start: 20100212
  9. SIGMART [Concomitant]
     Indication: PRINZMETAL ANGINA
     Route: 048
  10. DILTIAZEM HCL [Concomitant]
     Indication: PRINZMETAL ANGINA
     Route: 048
  11. NEORAL [Concomitant]
     Indication: BEHCET'S SYNDROME
     Route: 048
     Dates: start: 20090926
  12. REMICADE [Suspect]
     Dosage: TOTAL NUMBER OF INFUSIONS: 3
     Route: 042
     Dates: start: 20091228
  13. ANTIHISTAMINES [Concomitant]
     Dates: start: 20091228
  14. ACETAMINOPHEN [Concomitant]
     Dates: start: 20091228
  15. ASPIRIN [Concomitant]
     Indication: PRINZMETAL ANGINA
     Route: 048
  16. OLMESARTAN MEDOXOMIL [Concomitant]
     Indication: PRINZMETAL ANGINA
     Route: 048

REACTIONS (2)
  - LEUKOCYTOCLASTIC VASCULITIS [None]
  - LIVER DISORDER [None]
